FAERS Safety Report 5649608-6 (Version None)
Quarter: 2008Q1

REPORT INFORMATION
  Report Type: 
  Country: None (occurrence: None)
  Receive Date: 20080131
  Receipt Date: 20071230
  Transmission Date: 20080703
  Serious: No
  Sender: FDA-Public Use
  Company Number: US200712005376

PATIENT
  Age: 59 Year
  Sex: Male
  Weight: 93 kg

DRUGS (3)
  1. BYETTA [Suspect]
     Indication: TYPE 2 DIABETES MELLITUS
     Dosage: 5 UG, 2/D, SUBCUTANEOUS
     Route: 058
     Dates: start: 20071224
  2. GLYBURIDE AND METFORMIN HCL [Concomitant]
  3. GLYBURIDE [Concomitant]

REACTIONS (4)
  - BLOOD GLUCOSE DECREASED [None]
  - DECREASED APPETITE [None]
  - FEELING ABNORMAL [None]
  - HYPERHIDROSIS [None]
